FAERS Safety Report 8419613-5 (Version None)
Quarter: 2012Q2

REPORT INFORMATION
  Report Type: 
  Country: None (occurrence: None)
  Receive Date: 20120607
  Receipt Date: 20120604
  Transmission Date: 20120825
  Serious: Yes (Hospitalization)
  Sender: FDA-Public Use
  Company Number: US-MERCK-1206USA00445

PATIENT
  Age: 65 Year
  Sex: Male

DRUGS (3)
  1. LETAIRIS [Suspect]
     Route: 048
     Dates: start: 20120325
  2. FOSAMAX [Suspect]
     Route: 048
  3. PLAVIX [Suspect]
     Route: 065

REACTIONS (4)
  - LIFE SUPPORT [None]
  - RASH GENERALISED [None]
  - COMA [None]
  - RASH ERYTHEMATOUS [None]
